FAERS Safety Report 8559412 (Version 3)
Quarter: 2013Q2

REPORT INFORMATION
  Report Type: Spontaneous
  Country: US (occurrence: US)
  Receive Date: 20120512
  Receipt Date: 20130411
  Transmission Date: 20140414
  Serious: Yes (Other)
  Sender: FDA-Public Use
  Company Number: US-RB-040090-12

PATIENT
  Age: 0 None
  Sex: Male

DRUGS (3)
  1. SUBOXONE TABLET [Suspect]
     Indication: DRUG DEPENDENCE
     Route: 064
     Dates: start: 201103, end: 201108
  2. METHADONE [Suspect]
     Indication: DRUG DEPENDENCE
     Dosage: UNKNOWN UNIT DOSE
     Route: 064
     Dates: start: 201108, end: 201108
  3. GENERIC BUPRENORPHINE [Suspect]
     Indication: DRUG DEPENDENCE
     Route: 064
     Dates: start: 201108, end: 20111119

REACTIONS (3)
  - Foetal exposure during pregnancy [Recovered/Resolved]
  - Jaundice neonatal [Recovered/Resolved]
  - Exposure during breast feeding [Recovered/Resolved]
